FAERS Safety Report 5823573-0 (Version None)
Quarter: 2008Q3

REPORT INFORMATION
  Report Type: 
  Country: None (occurrence: None)
  Receive Date: 20080725
  Receipt Date: 20080715
  Transmission Date: 20090109
  Serious: Yes (Hospitalization)
  Sender: FDA-Public Use
  Company Number: JP-BOEHRINGER INGELHEIM GMBH, GERMANY-2008-DE-04317BY

PATIENT
  Age: 81 Year
  Sex: Female

DRUGS (4)
  1. MICARDIS [Suspect]
     Indication: HYPERTENSION
     Route: 048
     Dates: end: 20080101
  2. PASADEN [Suspect]
     Indication: ANXIETY
     Route: 048
     Dates: end: 20080701
  3. LUPRAC [Suspect]
     Indication: CARDIAC FAILURE
     Route: 048
     Dates: start: 20080524, end: 20080701
  4. SIGMART [Concomitant]

REACTIONS (3)
  - BLOOD CREATINE PHOSPHOKINASE INCREASED [None]
  - RHABDOMYOLYSIS [None]
  - SLUGGISHNESS [None]
